FAERS Safety Report 5590827-5 (Version None)
Quarter: 2008Q1

REPORT INFORMATION
  Report Type: 
  Country: None (occurrence: None)
  Receive Date: 20080110
  Receipt Date: 20080104
  Transmission Date: 20080703
  Serious: Yes (Congenital Anomaly, Other)
  Sender: FDA-Public Use
  Company Number: GXKR2007DE10315

PATIENT
  Sex: Male
  Weight: 3490 kg

DRUGS (1)
  1. CITALOPRAM HYDROBROMIDE [Suspect]
     Dosage: 20 MG, TRANSPLACENTAL
     Route: 064

REACTIONS (10)
  - ABSCESS [None]
  - ANOMALY OF EXTERNAL EAR CONGENITAL [None]
  - CONGENITAL EYELID MALFORMATION [None]
  - DRUG EXPOSURE DURING PREGNANCY [None]
  - HYPOTONIA NEONATAL [None]
  - NEONATAL DISORDER [None]
  - PERIANAL ABSCESS [None]
  - PROMINENT EPICANTHAL FOLDS [None]
  - VISUAL ACUITY REDUCED [None]
  - VISUAL DISTURBANCE [None]
